FAERS Safety Report 16063763 (Version 1)
Quarter: 2019Q1

REPORT INFORMATION
  Report Type: Spontaneous
  Country: US (occurrence: US)
  Receive Date: 20190312
  Receipt Date: 20190312
  Transmission Date: 20190418
  Serious: Yes (Hospitalization, Other)
  Sender: FDA-Public Use
  Company Number: US-RARE DISEASE THERAPEUTICS, INC.-2063866

PATIENT
  Age: 4 Year
  Sex: Male
  Weight: 18 kg

DRUGS (11)
  1. DEXAMETHASONE. [Suspect]
     Active Substance: DEXAMETHASONE
     Route: 065
     Dates: end: 20190114
  2. VITAMIN D [Concomitant]
     Active Substance: CHOLECALCIFEROL
     Route: 065
  3. PENICILLIN V POTASIUM [Concomitant]
     Active Substance: PENICILLIN V POTASSIUM
  4. MOLYBDENUM [Concomitant]
     Active Substance: MOLYBDENUM
     Route: 065
  5. BENTONITE [Concomitant]
     Active Substance: BENTONITE
     Route: 065
  6. CALCIUM LACTATE [Concomitant]
     Active Substance: CALCIUM LACTATE
     Route: 065
  7. VITAMIN B12 [Concomitant]
     Active Substance: CYANOCOBALAMIN
     Route: 065
  8. CHLOROPHYLL [Concomitant]
     Route: 065
  9. PURIXAN [Suspect]
     Active Substance: MERCAPTOPURINE
     Indication: ACUTE LEUKAEMIA
     Route: 065
     Dates: start: 20161108, end: 20190114
  10. METHOTREXATE. [Suspect]
     Active Substance: METHOTREXATE
     Route: 065
     Dates: end: 20190114
  11. SULFAMETHOXAZOLE AND TRIMETHOPRIM [Concomitant]
     Active Substance: SULFAMETHOXAZOLE\TRIMETHOPRIM

REACTIONS (2)
  - Cardiac failure [Not Recovered/Not Resolved]
  - Respiratory syncytial virus infection [Not Recovered/Not Resolved]

NARRATIVE: CASE EVENT DATE: 20190214
